FAERS Safety Report 5153303-X (Version None)
Quarter: 2006Q4

REPORT INFORMATION
  Report Type: 
  Country: None (occurrence: None)
  Receive Date: 20061116
  Receipt Date: 20061116
  Transmission Date: 20070319
  Serious: No
  Sender: FDA-Public Use
  Company Number: None

PATIENT
  Sex: Female
  Weight: 106 kg

DRUGS (1)
  1. TOPOTECAN [Suspect]
     Dosage: 12.5 MG

REACTIONS (1)
  - NEUTROPHIL COUNT DECREASED [None]
